FAERS Safety Report 9367056 (Version 1)
Quarter: 2013Q2

REPORT INFORMATION
  Report Type: Spontaneous
  Country: VN (occurrence: VN)
  Receive Date: 20130625
  Receipt Date: 20130625
  Transmission Date: 20140414
  Serious: Yes (Hospitalization, Other)
  Sender: FDA-Public Use
  Company Number: VN-BAXTER-2013BAX023628

PATIENT
  Age: 9 Year
  Sex: Male
  Weight: 33 kg

DRUGS (3)
  1. NAVELBINE [Suspect]
     Indication: RHABDOMYOSARCOMA
     Route: 042
  2. NAVELBINE [Suspect]
     Route: 042
     Dates: start: 20130515
  3. ENDOXAN [Suspect]
     Indication: RHABDOMYOSARCOMA
     Route: 048

REACTIONS (3)
  - Injection site inflammation [Recovering/Resolving]
  - Breast necrosis [Recovering/Resolving]
  - Drug administration error [Unknown]
